FAERS Safety Report 4377290-7 (Version None)
Quarter: 2004Q2

REPORT INFORMATION
  Report Type: 
  Country: None (occurrence: None)
  Receive Date: 20040609
  Receipt Date: 20040305
  Transmission Date: 20050107
  Serious: No
  Sender: FDA-Public Use
  Company Number: 2004202594US

PATIENT
  Age: 67 Year
  Sex: Male

DRUGS (3)
  1. BEXTRA [Suspect]
     Indication: BACK PAIN
     Dosage: 10 MG, BID
     Dates: start: 20040228
  2. NITROGLYCERIN ^A.L.^ [Concomitant]
  3. AMARYL [Concomitant]

REACTIONS (3)
  - FALL [None]
  - MASKED FACIES [None]
  - MOVEMENT DISORDER [None]
